FAERS Safety Report 16470686 (Version 4)
Quarter: 2022Q2

REPORT INFORMATION
  Report Type: Spontaneous
  Country: US (occurrence: US)
  Receive Date: 20190624
  Receipt Date: 20220610
  Transmission Date: 20220721
  Serious: Yes (Hospitalization)
  Sender: FDA-Public Use
  Company Number: US-CATALYST PHARMACEUTICALS, INC-2019CAT00091

PATIENT
  Sex: Female
  Weight: 48.526 kg

DRUGS (22)
  1. FIRDAPSE [Suspect]
     Active Substance: AMIFAMPRIDINE PHOSPHATE
     Indication: Myasthenic syndrome
     Dosage: 40 MG, 1X/DAY IN THE MORNING
     Route: 048
     Dates: start: 2018, end: 20220414
  2. FIRDAPSE [Suspect]
     Active Substance: AMIFAMPRIDINE PHOSPHATE
     Dosage: 10-20 MG AFTER BREAKFAST
     Route: 048
     Dates: start: 2018, end: 20220414
  3. FIRDAPSE [Suspect]
     Active Substance: AMIFAMPRIDINE PHOSPHATE
     Dosage: 20 MG, 1X/DAY AT 1:00 PM AFTER LUNCH
     Route: 048
     Dates: start: 2018, end: 20220414
  4. FIRDAPSE [Suspect]
     Active Substance: AMIFAMPRIDINE PHOSPHATE
     Dosage: UNK, AS NEEDED TO A TOTAL DAILY DOSE OF 100 MG
     Route: 048
     Dates: start: 2018, end: 20220414
  5. FIRDAPSE [Suspect]
     Active Substance: AMIFAMPRIDINE PHOSPHATE
     Dosage: 110 MG PER DAY
     Dates: start: 20220415, end: 2022
  6. FIRDAPSE [Suspect]
     Active Substance: AMIFAMPRIDINE PHOSPHATE
     Dosage: 110 MG PER DAY
     Dates: start: 2022
  7. AMIFAMPRIDINE [Suspect]
     Active Substance: AMIFAMPRIDINE
     Indication: Myasthenic syndrome
     Dosage: 40 MG, 2X/DAY IN THE MORNING AND AT NOON TO 1:00 PM
  8. AMIFAMPRIDINE [Suspect]
     Active Substance: AMIFAMPRIDINE
     Dosage: 20 MG, 1X/DAY IN THE EVENING AT ABOUT 5:00 PM
  9. MESTINON [Concomitant]
     Active Substance: PYRIDOSTIGMINE BROMIDE
     Dosage: 60 MG, 1X/DAY IN THE MORNING
  10. MESTINON [Concomitant]
     Active Substance: PYRIDOSTIGMINE BROMIDE
     Dosage: 120 MG, 3X/DAY
  11. VITAMINS [Concomitant]
     Active Substance: VITAMINS
  12. DRINK ALOE VERA [Concomitant]
  13. HERBALS\TURMERIC [Concomitant]
     Active Substance: HERBALS\TURMERIC
  14. VITAMIN C [Concomitant]
     Active Substance: ASCORBIC ACID
  15. VITAMIN D [Concomitant]
     Active Substance: VITAMIN D NOS
  16. GARLIC SUPPLEMENT [Concomitant]
  17. OMEGA 3 [Concomitant]
     Active Substance: CAPSAICIN
  18. VITAMIN B [Concomitant]
     Active Substance: VITAMIN B
  19. PREDNISONE [Concomitant]
     Active Substance: PREDNISONE
     Dosage: UNK ^WEANING OFF^
  20. PREDNISONE [Concomitant]
     Active Substance: PREDNISONE
     Dosage: 1 MG, 1X/DAY
  21. PREDNISONE [Concomitant]
     Active Substance: PREDNISONE
     Dosage: 30 MG, 1X/DAY
  22. MESTINON ER [Concomitant]
     Dosage: 180 MG, 1X/DAY AT BEDTIME

REACTIONS (25)
  - Hospitalisation [Recovered/Resolved]
  - Dysphagia [Unknown]
  - Burning sensation [Not Recovered/Not Resolved]
  - Therapeutic product effect incomplete [Recovered/Resolved]
  - Therapeutic product effect delayed [Recovered/Resolved]
  - Therapeutic response shortened [Recovered/Resolved]
  - Gait inability [Unknown]
  - Influenza like illness [Not Recovered/Not Resolved]
  - Rhinorrhoea [Recovered/Resolved]
  - Chills [Recovered/Resolved]
  - Food interaction [Not Recovered/Not Resolved]
  - Decreased appetite [Not Recovered/Not Resolved]
  - Weight decreased [Not Recovered/Not Resolved]
  - Therapeutic product effect increased [Not Recovered/Not Resolved]
  - Eye disorder [Unknown]
  - Visual impairment [Unknown]
  - Abdominal pain upper [Not Recovered/Not Resolved]
  - Neuralgia [Not Recovered/Not Resolved]
  - Dyspnoea [Unknown]
  - Paraesthesia [Not Recovered/Not Resolved]
  - Intentional overdose [Not Recovered/Not Resolved]
  - Asthenia [Not Recovered/Not Resolved]
  - Headache [Not Recovered/Not Resolved]
  - Unevaluable event [Not Recovered/Not Resolved]
  - Muscle spasms [Not Recovered/Not Resolved]

NARRATIVE: CASE EVENT DATE: 20180101
